FAERS Safety Report 5880052-2 (Version None)
Quarter: 2008Q3

REPORT INFORMATION
  Report Type: 
  Country: None (occurrence: None)
  Receive Date: 20080911
  Receipt Date: 20080911
  Transmission Date: 20090109
  Serious: Yes (Life-Threatening)
  Sender: FDA-Public Use
  Company Number: None

PATIENT
  Age: 59 Year
  Sex: Female
  Weight: 48.0813 kg

DRUGS (1)
  1. DECADRON [Suspect]
     Indication: ADDISON'S DISEASE
     Dosage: 8+ MG IV
     Route: 042
     Dates: start: 20080123

REACTIONS (3)
  - ASTHMA [None]
  - ILL-DEFINED DISORDER [None]
  - INJECTION SITE IRRITATION [None]
